FAERS Safety Report 21336918 (Version 1)
Quarter: 2022Q3

REPORT INFORMATION
  Report Type: Spontaneous
  Country: PL (occurrence: PL)
  Receive Date: 20220915
  Receipt Date: 20220915
  Transmission Date: 20221026
  Serious: Yes (Other)
  Sender: FDA-Public Use
  Company Number: PL-MYLANLABS-2022M1093250

PATIENT
  Age: 16 Year
  Sex: Female

DRUGS (7)
  1. PREGABALIN [Suspect]
     Active Substance: PREGABALIN
     Indication: Bipolar disorder
     Dosage: 75 MILLIGRAM, PM, IN THE EVENING
     Route: 065
     Dates: start: 202010
  2. QUETIAPINE [Suspect]
     Active Substance: QUETIAPINE
     Indication: Bipolar disorder
     Dosage: 400 MILLIGRAM, PM, IN THE EVENING; EXTENDED RELEASE
     Route: 065
     Dates: start: 202010
  3. ARIPIPRAZOLE [Suspect]
     Active Substance: ARIPIPRAZOLE
     Indication: Bipolar disorder
     Dosage: 15 MILLIGRAM, AM,  IN THE MORNING
     Route: 065
     Dates: start: 202010
  4. MORPHINE [Concomitant]
     Active Substance: MORPHINE
     Indication: Product used for unknown indication
     Dosage: UNK
     Route: 065
  5. AMPHETAMINE [Concomitant]
     Active Substance: AMPHETAMINE
     Indication: Product used for unknown indication
     Dosage: UNK
     Route: 065
  6. METHAMPHETAMINE [Concomitant]
     Active Substance: METHAMPHETAMINE
     Indication: Product used for unknown indication
     Dosage: UNK
     Route: 042
  7. CODEINE [Concomitant]
     Active Substance: CODEINE
     Indication: Product used for unknown indication
     Dosage: UNK
     Route: 065

REACTIONS (2)
  - Drug ineffective [Unknown]
  - Off label use [Unknown]
